FAERS Safety Report 25975703 (Version 1)
Quarter: 2025Q4

REPORT INFORMATION
  Report Type: Spontaneous
  Country: CN (occurrence: CN)
  Receive Date: 20251029
  Receipt Date: 20251029
  Transmission Date: 20260118
  Serious: Yes (Hospitalization)
  Sender: COHERUS
  Company Number: CN-SHANGHAI JUNSHI BIOSCIENCES CO., LTD.-CN2025016200

PATIENT

DRUGS (6)
  1. TORIPALIMAB [Suspect]
     Active Substance: TORIPALIMAB
     Indication: Keratinising squamous cell carcinoma of nasopharynx
     Dosage: 240 MG, SINGLE
     Route: 041
     Dates: start: 20251004, end: 20251004
  2. GEMCITABINE HYDROCHLORIDE [Suspect]
     Active Substance: GEMCITABINE HYDROCHLORIDE
     Indication: Keratinising squamous cell carcinoma of nasopharynx
     Dosage: 1.6 G, SINGLE
     Route: 041
     Dates: start: 20251005, end: 20251005
  3. CISPLATIN [Suspect]
     Active Substance: CISPLATIN
     Indication: Keratinising squamous cell carcinoma of nasopharynx
     Dosage: 130 MG, SINGLE
     Route: 041
     Dates: start: 20251005, end: 20251005
  4. SODIUM CHLORIDE [Concomitant]
     Active Substance: SODIUM CHLORIDE
     Indication: Medication dilution
     Dosage: 100 ML, SINGLE
     Route: 041
     Dates: start: 20251004, end: 20251004
  5. SODIUM CHLORIDE [Concomitant]
     Active Substance: SODIUM CHLORIDE
     Dosage: 100 ML, SINGLE
     Route: 041
     Dates: start: 20251005, end: 20251005
  6. SODIUM CHLORIDE [Concomitant]
     Active Substance: SODIUM CHLORIDE
     Indication: Medication dilution
     Dosage: 288 ML, SINGLE
     Route: 041
     Dates: start: 20251005, end: 20251005

REACTIONS (1)
  - Myelosuppression [Recovering/Resolving]

NARRATIVE: CASE EVENT DATE: 20251011
